FAERS Safety Report 6594366-4 (Version None)
Quarter: 2010Q1

REPORT INFORMATION
  Report Type: 
  Country: None (occurrence: None)
  Receive Date: 20100222
  Receipt Date: 20100217
  Transmission Date: 20100710
  Serious: Yes (Hospitalization)
  Sender: FDA-Public Use
  Company Number: A0796470A

PATIENT
  Age: 63 Year
  Sex: Male
  Weight: 99.1 kg

DRUGS (3)
  1. AVANDIA [Suspect]
     Dosage: 4MG PER DAY
     Route: 048
     Dates: start: 20000118
  2. AVANDAMET [Suspect]
     Route: 048
     Dates: start: 20030527
  3. AVANDARYL [Suspect]
     Route: 048
     Dates: start: 20060603

REACTIONS (3)
  - CARDIAC FAILURE CONGESTIVE [None]
  - MYOCARDIAL INFARCTION [None]
  - RENAL FAILURE [None]
